FAERS Safety Report 21049987 (Version 3)
Quarter: 2022Q3

REPORT INFORMATION
  Report Type: Report from Study
  Country: US (occurrence: US)
  Receive Date: 20220706
  Receipt Date: 20220929
  Transmission Date: 20221026
  Serious: Yes (Hospitalization)
  Sender: FDA-Public Use
  Company Number: US-Replimune Inc.-US-RPL-22-00113

PATIENT
  Age: 72 Year
  Sex: Male

DRUGS (6)
  1. CEMIPLIMAB [Suspect]
     Active Substance: CEMIPLIMAB
     Indication: Squamous cell carcinoma of skin
     Dosage: 350 MILLIGRAM EVERY 3 WEEKS
     Route: 042
     Dates: start: 20211123, end: 20211123
  2. CEMIPLIMAB [Suspect]
     Active Substance: CEMIPLIMAB
     Dosage: 350 MILLIGRAM EVERY 3 WEEKS
     Route: 042
     Dates: start: 20220607, end: 20220628
  3. LEXAPRO [Concomitant]
     Active Substance: ESCITALOPRAM OXALATE
     Indication: Depression
     Dosage: 20 MILLIGRAM, QD
  4. IRBESARTAN (AVAPRO) [Concomitant]
     Indication: Hypertension
     Dosage: 150 MILLIGRAM, QD
     Dates: start: 20170227
  5. LOVASTATIN (MEVACOR) [Concomitant]
     Indication: Blood cholesterol increased
     Dosage: 40 MILLIGRAM, QD
  6. OMEPRAZOLE [Concomitant]
     Active Substance: OMEPRAZOLE
     Indication: Gastrooesophageal reflux disease
     Dosage: 20 MILLIGRAM, QD

REACTIONS (1)
  - Autoimmune nephritis [Recovered/Resolved]

NARRATIVE: CASE EVENT DATE: 20220627
